FAERS Safety Report 4351433-3 (Version None)
Quarter: 2004Q2

REPORT INFORMATION
  Report Type: 
  Country: None (occurrence: None)
  Receive Date: 20040503
  Receipt Date: 20040421
  Transmission Date: 20050107
  Serious: Yes (Other)
  Sender: FDA-Public Use
  Company Number: JP-BRISTOL-MYERS SQUIBB COMPANY-12574075

PATIENT
  Age: 58 Year
  Sex: Male

DRUGS (4)
  1. ENDOXAN [Suspect]
     Indication: INTERSTITIAL LUNG DISEASE
     Dosage: THERAPY DATES: 20 TO 28-MAR-2004
     Route: 042
     Dates: start: 20040328, end: 20040328
  2. PREDONINE [Concomitant]
     Indication: INTERSTITIAL LUNG DISEASE
     Route: 042
     Dates: start: 20040317
  3. MODACIN [Concomitant]
     Indication: INTERSTITIAL LUNG DISEASE
     Route: 042
     Dates: start: 20040317, end: 20040325
  4. ZANTAC [Concomitant]
     Indication: INTERSTITIAL LUNG DISEASE
     Route: 042
     Dates: start: 20040309

REACTIONS (1)
  - LIVER DISORDER [None]
